FAERS Safety Report 8054795-9 (Version None)
Quarter: 2012Q1

REPORT INFORMATION
  Report Type: 
  Country: None (occurrence: None)
  Receive Date: 20120112
  Receipt Date: 20111231
  Transmission Date: 20120608
  Serious: Yes (Death)
  Sender: FDA-Public Use
  Company Number: 1152716

PATIENT
  Age: 73 Year
  Sex: Male

DRUGS (3)
  1. FLUOROURACIL [Concomitant]
  2. LEUCOVORIN CALCIUM [Concomitant]
  3. OXALIPLATIN [Suspect]
     Indication: COLON CANCER
     Dosage: TOTAL DOSE OF 680 MG/M^2

REACTIONS (5)
  - PNEUMONIA [None]
  - LEUKOCYTOSIS [None]
  - INTERSTITIAL LUNG DISEASE [None]
  - RESPIRATORY FAILURE [None]
  - PULMONARY FIBROSIS [None]
